FAERS Safety Report 9701441 (Version 3)
Quarter: 2013Q4

REPORT INFORMATION
  Report Type: Report from Study
  Country: JP (occurrence: JP)
  Receive Date: 20131121
  Receipt Date: 20131205
  Transmission Date: 20140711
  Serious: Yes (Other)
  Sender: FDA-Public Use
  Company Number: JP-009507513-1305JPN006077

PATIENT
  Age: 42 Year
  Sex: Female
  Weight: 50 kg

DRUGS (7)
  1. GANIRELIX ACETATE [Suspect]
     Indication: PREVENTION OF PREMATURE OVULATION
     Dosage: 0.25 MG, QD
     Route: 058
     Dates: start: 20100529, end: 20100601
  2. PREGNYL INTRAMUSCULAR 5,000U [Suspect]
     Indication: OVULATION INDUCTION
     Dosage: 10 THOUSAND-MILLION IU, QD
     Route: 030
     Dates: start: 20100601, end: 20100601
  3. PROGESTON [Concomitant]
     Indication: IN VITRO FERTILISATION
     Dosage: 50 MG, QD
     Route: 030
     Dates: start: 20100605, end: 20100620
  4. ESTRANA [Concomitant]
     Indication: IN VITRO FERTILISATION
     Dosage: 1 DF, QD TAP
     Route: 062
     Dates: start: 20100608, end: 20100620
  5. PLANOVAR [Concomitant]
     Indication: IN VITRO FERTILISATION
     Dosage: 1 DF, QD
     Route: 048
     Dates: start: 20100510, end: 20100519
  6. GONALEF [Concomitant]
     Indication: IN VITRO FERTILISATION
     Dosage: 225 UNDER1000UNIT, QD
     Route: 058
     Dates: start: 20100523, end: 20100601
  7. HCG [Concomitant]
     Indication: IN VITRO FERTILISATION
     Dosage: 100 UNDER1000UNIT, QD
     Route: 030
     Dates: start: 20100529, end: 20100601

REACTIONS (1)
  - Abortion [Recovered/Resolved]
